FAERS Safety Report 4575677-0 (Version None)
Quarter: 2005Q1

REPORT INFORMATION
  Report Type: 
  Country: None (occurrence: None)
  Receive Date: 20050128
  Receipt Date: 20050128
  Transmission Date: 20050727
  Serious: Yes (Other)
  Sender: FDA-Public Use
  Company Number: None

PATIENT
  Age: 80 Year
  Sex: Female
  Weight: 65.7716 kg

DRUGS (9)
  1. DICLOFENAC (GENERIC) [Suspect]
     Indication: OSTEOARTHRITIS
     Dosage: 95 MG ONE PO Q DAY
     Route: 048
     Dates: start: 20020101, end: 20020901
  2. DICLOFENAC (GENERIC) [Suspect]
     Indication: SPINAL DISORDER
     Dosage: 95 MG ONE PO Q DAY
     Route: 048
     Dates: start: 20020101, end: 20020901
  3. LEVOTHYROXINE [Concomitant]
  4. LASIX [Concomitant]
  5. K-DUR 10 [Concomitant]
  6. TERNORMIN [Concomitant]
  7. SULFASALAZIN [Concomitant]
  8. FOLIC ACID [Concomitant]
  9. CALCIUM GLUCONATE [Concomitant]

REACTIONS (4)
  - ABDOMINAL DISCOMFORT [None]
  - DYSPEPSIA [None]
  - INTESTINAL HYPERMOTILITY [None]
  - PHARMACEUTICAL PRODUCT COMPLAINT [None]
